FAERS Safety Report 9456694 (Version 3)
Quarter: 2013Q3

REPORT INFORMATION
  Report Type: Spontaneous
  Country: US (occurrence: US)
  Receive Date: 20130813
  Receipt Date: 20130830
  Transmission Date: 20140515
  Serious: No
  Sender: FDA-Public Use
  Company Number: US-009507513-1308USA005766

PATIENT
  Age: 68 Year
  Sex: Male
  Weight: 97.51 kg

DRUGS (8)
  1. CLARITIN-D [Suspect]
     Indication: HYPERSENSITIVITY
     Dosage: 5 MG, Q12H
     Route: 048
     Dates: start: 20130802, end: 20130804
  2. CLARITIN-D [Suspect]
     Indication: MEDICAL OBSERVATION
  3. CLONIDINE [Concomitant]
     Indication: HYPERTENSION
     Dosage: UNK, UNKNOWN
  4. LOSARTAN POTASSIUM [Concomitant]
     Indication: HYPERTENSION
     Dosage: UNK, UNKNOWN
  5. LOVASTATIN [Concomitant]
     Indication: HYPERTENSION
     Dosage: UNK, UNKNOWN
  6. GLIPIZIDE [Concomitant]
     Indication: DIABETES MELLITUS
     Dosage: UNK, UNKNOWN
  7. CARVEDILOL [Concomitant]
     Indication: BLOOD CHOLESTEROL INCREASED
     Dosage: UNK, UNKNOWN
  8. DOXAZOSIN MESYLATE [Concomitant]
     Indication: BLOOD CHOLESTEROL INCREASED
     Dosage: UNK, UNKNOWN

REACTIONS (1)
  - Swelling face [Recovered/Resolved]
